FAERS Safety Report 5852544-3 (Version None)
Quarter: 2008Q3

REPORT INFORMATION
  Report Type: 
  Country: None (occurrence: None)
  Receive Date: 20080820
  Receipt Date: 20080820
  Transmission Date: 20090109
  Serious: No
  Sender: FDA-Public Use
  Company Number: None

PATIENT
  Age: 45 Year
  Sex: Female
  Weight: 108.8633 kg

DRUGS (1)
  1. KENALOG [Suspect]
     Dosage: ONCE

REACTIONS (9)
  - ARTIFICIAL CROWN PROCEDURE [None]
  - BLINDNESS UNILATERAL [None]
  - ENDODONTIC PROCEDURE [None]
  - EYE PAIN [None]
  - LOSS OF EMPLOYMENT [None]
  - METAMORPHOPSIA [None]
  - PAIN [None]
  - RETINAL VEIN OCCLUSION [None]
  - TOOTH LOSS [None]
